FAERS Safety Report 12716550 (Version 1)
Quarter: 2016Q3

REPORT INFORMATION
  Report Type: Spontaneous
  Country: CH (occurrence: CH)
  Receive Date: 20160906
  Receipt Date: 20160906
  Transmission Date: 20161109
  Serious: Yes (Hospitalization, Other)
  Sender: FDA-Public Use
  Company Number: CH-PFIZER INC-2016410739

PATIENT
  Age: 81 Year
  Sex: Female
  Weight: 93 kg

DRUGS (13)
  1. SORTIS [Concomitant]
     Active Substance: ATORVASTATIN
     Dosage: 20 MG, 1X/DAY
     Route: 048
  2. TAZOBAC [Suspect]
     Active Substance: PIPERACILLIN SODIUM\TAZOBACTAM SODIUM
     Dosage: UNK
     Route: 041
     Dates: start: 201607, end: 201607
  3. ZINAT [Suspect]
     Active Substance: CEFUROXIME AXETIL
     Dosage: 250 MG, 2X/DAY
     Route: 048
     Dates: start: 201607, end: 201607
  4. TOREM /01036501/ [Concomitant]
     Active Substance: TORSEMIDE
     Dosage: 10 MG, 1X/DAY
     Route: 048
  5. DIOVAN [Concomitant]
     Active Substance: VALSARTAN
     Dosage: 160 MG, 1X/DAY
     Route: 048
  6. ZOLOFT [Suspect]
     Active Substance: SERTRALINE HYDROCHLORIDE
     Dosage: 50 MG, 1X/DAY
     Route: 048
     Dates: end: 201607
  7. ANAFRANIL [Suspect]
     Active Substance: CLOMIPRAMINE HYDROCHLORIDE
     Dosage: 25 MG, 1X/DAY
     Route: 048
     Dates: end: 201607
  8. AMLODIPIN-MEPHA [Concomitant]
     Active Substance: AMLODIPINE MESYLATE
     Dosage: 10 MG, 1X/DAY
     Route: 048
  9. TEMESTA [Suspect]
     Active Substance: LORAZEPAM
     Dosage: 0.5 MG, 2X/DAY, A SINGLE ADMINISTRATION
     Route: 048
     Dates: start: 20160711, end: 20160711
  10. DILZEM [Concomitant]
     Active Substance: DILTIAZEM
     Dosage: 60 MG, 3X/DAY
     Route: 048
  11. RYZODEG 70/30 [Concomitant]
     Active Substance: INSULIN ASPART\INSULIN DEGLUDEC
     Dosage: 12 IU, 1X/DAY
     Route: 058
  12. TARGIN [Suspect]
     Active Substance: NALOXONE HYDROCHLORIDE\OXYCODONE HYDROCHLORIDE
     Dosage: 1 DF (5/2.5 MG), 2X/DAY
     Route: 048
     Dates: start: 201606, end: 201607
  13. ASPIRIN CARDIO [Concomitant]
     Active Substance: ASPIRIN
     Dosage: 100 MG, 1X/DAY
     Route: 048

REACTIONS (6)
  - Hypercapnia [Recovered/Resolved]
  - Illusion [Recovered/Resolved]
  - Hallucination, visual [Recovered/Resolved]
  - Altered state of consciousness [Recovered/Resolved]
  - Off label use [Recovered/Resolved]
  - Agitation [Recovered/Resolved]

NARRATIVE: CASE EVENT DATE: 201607
